FAERS Safety Report 4451557-6 (Version None)
Quarter: 2004Q3

REPORT INFORMATION
  Report Type: 
  Country: None (occurrence: None)
  Receive Date: 20040915
  Receipt Date: 20040903
  Transmission Date: 20050211
  Serious: Yes (Other)
  Sender: FDA-Public Use
  Company Number: US009578

PATIENT
  Age: 31 Year
  Sex: Male

DRUGS (12)
  1. GABITRIL [Suspect]
     Indication: AFFECTIVE DISORDER
  2. GABITRIL [Suspect]
     Indication: INSOMNIA
  3. PROCARDIA [Concomitant]
  4. PREDNISONE [Concomitant]
  5. IMURAN [Concomitant]
  6. PEPCID [Concomitant]
  7. BENADRYL [Concomitant]
  8. PRINIVIL [Concomitant]
  9. NEORAL [Concomitant]
  10. OS-CAL [Concomitant]
  11. COLACE [Concomitant]
  12. TYLENOL [Concomitant]

REACTIONS (7)
  - CARDIOMEGALY [None]
  - DRUG LEVEL BELOW THERAPEUTIC [None]
  - GRAND MAL CONVULSION [None]
  - OVERDOSE [None]
  - SINUS TACHYCARDIA [None]
  - STATUS EPILEPTICUS [None]
  - SUICIDE ATTEMPT [None]
